FAERS Safety Report 8561975 (Version 2)
Quarter: 2012Q4

REPORT INFORMATION
  Report Type: 
  Country: US (occurrence: US)
  Receive Date: 20120515
  Receipt Date: 20121213
  Transmission Date: 20130627
  Serious: Yes (Hospitalization)
  Sender: FDA-Public Use
  Company Number: US-BAYER-2012-046316

PATIENT
  Age: 29 Year
  Sex: Female

DRUGS (11)
  1. YAZ [Suspect]
  2. YASMIN [Suspect]
  3. EFFEXOR XR [Concomitant]
     Dosage: 75 mg, QD
     Route: 048
     Dates: start: 20060612
  4. CLONAZEPAM [Concomitant]
     Dosage: 0.5 mg, take 1 tablet two times a day
     Dates: start: 20060816
  5. CYMBALTA [Concomitant]
  6. FLOVENT [Concomitant]
  7. PREDNISONE [Concomitant]
  8. COUGH SYRUP [Concomitant]
  9. PREMARIN [Concomitant]
  10. ANTIBIOTICS [Concomitant]
  11. KLONOPIN [Concomitant]

REACTIONS (8)
  - Pulmonary embolism [None]
  - Injury [None]
  - Pain [None]
  - Anhedonia [None]
  - Quality of life decreased [None]
  - Emotional distress [None]
  - Anxiety [None]
  - Fear [None]
